FAERS Safety Report 4370589-X (Version None)
Quarter: 2004Q2

REPORT INFORMATION
  Report Type: 
  Country: None (occurrence: None)
  Receive Date: 20040601
  Receipt Date: 20040310
  Transmission Date: 20050107
  Serious: No
  Sender: FDA-Public Use
  Company Number: USA040362393

PATIENT
  Age: 75 Year
  Sex: Male

DRUGS (4)
  1. ALIMTA [Suspect]
     Indication: MESOTHELIOMA
     Dosage: 500 MG/M2 OTHER
  2. CISPLATIN [Concomitant]
  3. DEXAMETHASONE [Concomitant]
  4. VITAMINS NOS [Concomitant]

REACTIONS (1)
  - HALLUCINATION [None]
